FAERS Safety Report 6994683-X (Version None)
Quarter: 2010Q3

REPORT INFORMATION
  Report Type: 
  Country: None (occurrence: None)
  Receive Date: 20100915
  Receipt Date: 20100913
  Transmission Date: 20110219
  Serious: Yes (Other)
  Sender: FDA-Public Use
  Company Number: TRP_06933_2010

PATIENT
  Sex: Female

DRUGS (2)
  1. RIBASPHERE [Suspect]
     Indication: PRODUCT USED FOR UNKNOWN INDICATION
     Dosage: (DF)
  2. PEGASYS [Suspect]
     Indication: PRODUCT USED FOR UNKNOWN INDICATION
     Dosage: (DF)

REACTIONS (10)
  - CHOLECYSTITIS [None]
  - DIARRHOEA [None]
  - FATIGUE [None]
  - HEPATIC CIRRHOSIS [None]
  - INFECTION [None]
  - INFLUENZA LIKE ILLNESS [None]
  - MUSCLE SPASMS [None]
  - PLATELET COUNT DECREASED [None]
  - UPPER RESPIRATORY TRACT CONGESTION [None]
  - WEIGHT INCREASED [None]
